FAERS Safety Report 7230550-4 (Version None)
Quarter: 2011Q1

REPORT INFORMATION
  Report Type: 
  Country: None (occurrence: None)
  Receive Date: 20110118
  Receipt Date: 20110106
  Transmission Date: 20110831
  Serious: Yes (Disabling, Other)
  Sender: FDA-Public Use
  Company Number: PHHY2010US77373

PATIENT
  Sex: Female
  Weight: 117 kg

DRUGS (1)
  1. FEMARA [Suspect]
     Indication: BREAST CANCER
     Dosage: 2.5 MG, QD
     Route: 048
     Dates: start: 20100901, end: 20101101

REACTIONS (12)
  - CARPAL TUNNEL SYNDROME [None]
  - SENSORY LOSS [None]
  - LYMPHOEDEMA [None]
  - TENDONITIS [None]
  - BACK PAIN [None]
  - TRIGGER FINGER [None]
  - PARAESTHESIA [None]
  - PAIN IN EXTREMITY [None]
  - ARTHRALGIA [None]
  - HYPOAESTHESIA [None]
  - MUSCULOSKELETAL DISCOMFORT [None]
  - PHALEN'S TEST POSITIVE [None]
